FAERS Safety Report 9699451 (Version 1)
Quarter: 2013Q4

REPORT INFORMATION
  Report Type: Spontaneous
  Country: US (occurrence: US)
  Receive Date: 20131120
  Receipt Date: 20131120
  Transmission Date: 20140711
  Serious: No
  Sender: FDA-Public Use
  Company Number: US-TEVA-369372USA

PATIENT
  Age: 23 Year
  Sex: Female
  Weight: 76.27 kg

DRUGS (2)
  1. PARAGARD 380A [Suspect]
     Indication: CONTRACEPTION
     Route: 015
     Dates: start: 20120709, end: 20121106
  2. MULTIVITAMIN [Concomitant]

REACTIONS (2)
  - Pelvic pain [Recovered/Resolved]
  - Device expulsion [Recovered/Resolved]
